FAERS Safety Report 8018732-5 (Version None)
Quarter: 2012Q1

REPORT INFORMATION
  Report Type: 
  Country: None (occurrence: None)
  Receive Date: 20120103
  Receipt Date: 20120103
  Transmission Date: 20120608
  Serious: Yes (Disabling)
  Sender: FDA-Public Use
  Company Number: None

PATIENT
  Age: 53 Year
  Sex: Female
  Weight: 62.595 kg

DRUGS (2)
  1. LEVAQUIN [Suspect]
     Indication: SINUSITIS
     Dosage: 1 TABLET
     Route: 048
     Dates: start: 20110211, end: 20110215
  2. AVELOX [Concomitant]
     Indication: REFUSAL OF TREATMENT BY PATIENT
     Dosage: 1 TABLET
     Route: 048
     Dates: start: 20110216, end: 20110217

REACTIONS (11)
  - PAIN IN EXTREMITY [None]
  - PLANTAR FASCIITIS [None]
  - ARTHRALGIA [None]
  - PARAESTHESIA [None]
  - HYPOAESTHESIA ORAL [None]
  - VITREOUS FLOATERS [None]
  - VISUAL IMPAIRMENT [None]
  - EYE IRRITATION [None]
  - OCULAR HYPERAEMIA [None]
  - DIZZINESS [None]
  - EYE SWELLING [None]
